FAERS Safety Report 4948345-0 (Version None)
Quarter: 2006Q1

REPORT INFORMATION
  Report Type: 
  Country: None (occurrence: None)
  Receive Date: 20060320
  Receipt Date: 20050912
  Transmission Date: 20060701
  Serious: Yes (Hospitalization)
  Sender: FDA-Public Use
  Company Number: FR-ROCHE-417300

PATIENT
  Age: 25 Year
  Sex: Female
  Weight: 53 kg

DRUGS (9)
  1. DACLIZUMAB [Suspect]
     Route: 042
     Dates: start: 20050615, end: 20050615
  2. DACLIZUMAB [Suspect]
     Route: 042
     Dates: start: 20050630, end: 20050630
  3. MYCOPHENOLATE MOFETIL [Suspect]
     Route: 048
     Dates: start: 20050614
  4. CYCLOSPORINE [Suspect]
     Indication: RENAL TRANSPLANT
     Route: 048
     Dates: start: 20050615
  5. SIROLIMUS [Suspect]
     Route: 048
     Dates: start: 20050906, end: 20051211
  6. PREDNISOLONE SODIUM METASULPHOBENZOATE [Suspect]
     Indication: RENAL TRANSPLANT
     Route: 048
     Dates: start: 20050614
  7. PROGRAF [Concomitant]
     Dates: start: 20051212
  8. TENORMIN [Concomitant]
     Dates: start: 20060202
  9. OMEPRAZOLE [Concomitant]
     Dates: start: 20050614

REACTIONS (3)
  - CYTOMEGALOVIRUS ANTIGEN POSITIVE [None]
  - FEBRILE NEUTROPENIA [None]
  - PYREXIA [None]
